FAERS Safety Report 22626559 (Version 2)
Quarter: 2023Q2

REPORT INFORMATION
  Report Type: Spontaneous
  Country: US (occurrence: US)
  Receive Date: 20230621
  Receipt Date: 20230621
  Transmission Date: 20230721
  Serious: No
  Sender: FDA-Public Use
  Company Number: US-KEDRION-2023-000112

PATIENT
  Age: 49 Year
  Sex: Female
  Weight: 74 kg

DRUGS (2)
  1. RYPLAZIM [Suspect]
     Active Substance: PLASMINOGEN
     Indication: Plasminogen activator inhibitor type 1 deficiency
     Dosage: 481.6 MILLIGRAM, 1EVERY3DAYS
     Route: 042
     Dates: start: 20230228, end: 20230228
  2. RYPLAZIM [Suspect]
     Active Substance: PLASMINOGEN
     Dosage: 481.6 MILLIGRAM
     Route: 042
     Dates: start: 20230303, end: 20230303

REACTIONS (5)
  - Pain in extremity [Recovered/Resolved]
  - Sleep disorder [Recovered/Resolved]
  - Epistaxis [Recovered/Resolved]
  - Therapy responder [Recovered/Resolved]
  - Peripheral swelling [Recovered/Resolved]

NARRATIVE: CASE EVENT DATE: 20230228
